FAERS Safety Report 9255819 (Version 1)
Quarter: 2013Q2

REPORT INFORMATION
  Report Type: Spontaneous
  Country: US (occurrence: US)
  Receive Date: 20130425
  Receipt Date: 20130425
  Transmission Date: 20140414
  Serious: Yes (Hospitalization)
  Sender: FDA-Public Use
  Company Number: US-ELI_LILLY_AND_COMPANY-US201304005724

PATIENT
  Sex: Female

DRUGS (2)
  1. HUMALOG LISPRO [Suspect]
     Indication: DIABETES MELLITUS
     Dosage: UNK, UNKNOWN
  2. CYMBALTA [Concomitant]
     Indication: PAIN

REACTIONS (6)
  - Infected skin ulcer [Unknown]
  - Localised infection [Unknown]
  - Diabetic complication [Unknown]
  - Neuropathy peripheral [Unknown]
  - Neuralgia [Unknown]
  - Back pain [Unknown]
